FAERS Safety Report 6895670-2 (Version None)
Quarter: 2010Q3

REPORT INFORMATION
  Report Type: 
  Country: None (occurrence: None)
  Receive Date: 20100730
  Receipt Date: 20100730
  Transmission Date: 20110219
  Serious: Yes (Disabling)
  Sender: FDA-Public Use
  Company Number: None

PATIENT
  Age: 56 Year
  Sex: Female
  Weight: 68.9467 kg

DRUGS (1)
  1. FLUTICASONE PROPIONATE [Suspect]
     Indication: SINUS CONGESTION
     Dosage: ONE OR TWO SPRAYS 1X OR 2X/DAY NASAL
     Route: 045
     Dates: start: 20081015, end: 20090515

REACTIONS (2)
  - CATARACT [None]
  - IMPAIRED DRIVING ABILITY [None]
